FAERS Safety Report 8550302-2 (Version None)
Quarter: 2012Q3

REPORT INFORMATION
  Report Type: 
  Country: None (occurrence: None)
  Receive Date: 20120730
  Receipt Date: 20120726
  Transmission Date: 20120928
  Serious: Yes (Other)
  Sender: FDA-Public Use
  Company Number: PHHY2012BR065183

PATIENT
  Age: 39 Year
  Sex: Female

DRUGS (2)
  1. CATAFLAM [Suspect]
     Indication: NECK PAIN
     Dosage: 50 MG, UNK
  2. CATAFLAM [Suspect]
     Indication: NECK PAIN
     Dosage: 50 MG, UNK

REACTIONS (1)
  - DRUG DISPENSING ERROR [None]
